FAERS Safety Report 19452503 (Version 3)
Quarter: 2021Q3

REPORT INFORMATION
  Report Type: Report from Study
  Country: PL (occurrence: PL)
  Receive Date: 20210623
  Receipt Date: 20210823
  Transmission Date: 20211014
  Serious: Yes (Hospitalization)
  Sender: FDA-Public Use
  Company Number: PL-ROCHE-2818561

PATIENT
  Age: 70 Year
  Sex: Male
  Weight: 98 kg

DRUGS (41)
  1. MOSUNETUZUMAB. [Suspect]
     Active Substance: MOSUNETUZUMAB
     Indication: B-CELL LYMPHOMA
     Dosage: START DATE OF MOST RECENT DOSE OF STUDY DRUG PRIOR TO SAE: 22/APR/2021 (30 MG) FOR THE EVENT PERIOST
     Route: 042
     Dates: start: 20210401
  2. PREDNISONE. [Suspect]
     Active Substance: PREDNISONE
     Indication: B-CELL LYMPHOMA
     Dosage: START DATE OF MOST RECENT DOSE OF STUDY DRUG (100 MG) PRIOR TO SAE: 05/APR/2021?START DATE OF MOST R
     Route: 042
     Dates: start: 20210401
  3. ENCORTON [Concomitant]
     Active Substance: PREDNISONE
     Route: 048
     Dates: start: 20210402, end: 20210405
  4. ENCORTON [Concomitant]
     Active Substance: PREDNISONE
     Route: 048
     Dates: start: 20210611, end: 20210614
  5. ZARZIO [Concomitant]
     Active Substance: FILGRASTIM
     Dosage: 48 U
     Route: 048
     Dates: start: 20210611, end: 20210615
  6. ALLERTEC [Concomitant]
     Active Substance: CETIRIZINE HYDROCHLORIDE
     Route: 048
     Dates: start: 20210408, end: 20210408
  7. POLATUZUMAB VEDOTIN. [Suspect]
     Active Substance: POLATUZUMAB VEDOTIN
     Indication: B-CELL LYMPHOMA
     Dosage: THE PATIENT RECEIVED THE MOST RECENT DOSE OF POLATUZUMAB VEDOTIN ON 20/MAY/2021 (189 MG) PRIOR TO PE
     Route: 042
     Dates: start: 20210401
  8. MILURIT [Concomitant]
     Active Substance: ALLOPURINOL
     Route: 048
     Dates: start: 20210401
  9. SIOFOR [Concomitant]
     Active Substance: METFORMIN HYDROCHLORIDE
     Route: 048
     Dates: start: 20210430
  10. CLEMASTIN [Concomitant]
     Active Substance: CLEMASTINE
     Route: 048
     Dates: start: 20210610, end: 20210610
  11. RED BLOOD CELLS?LEUKOCYTES REDUCED [Concomitant]
     Active Substance: HUMAN RED BLOOD CELL
     Route: 042
     Dates: start: 20210611, end: 20210612
  12. AVASART [Concomitant]
     Route: 048
     Dates: start: 20201218
  13. PARACETAMOL [Concomitant]
     Active Substance: ACETAMINOPHEN
     Route: 048
     Dates: start: 20210401, end: 20210401
  14. AMERTIL [Concomitant]
     Active Substance: CETIRIZINE HYDROCHLORIDE
     Route: 048
     Dates: start: 20210401, end: 20210402
  15. CLEMASTIN [Concomitant]
     Active Substance: CLEMASTINE
     Route: 042
     Dates: start: 20210401, end: 20210402
  16. DEXAVEN [Concomitant]
     Active Substance: DEXAMETHASONE
     Route: 042
     Dates: start: 20210402, end: 20210402
  17. BISEPTOL [Concomitant]
     Active Substance: SULFAMETHOXAZOLE\TRIMETHOPRIM
     Route: 048
     Dates: start: 20210409
  18. PYRALGIN (POLAND) [Concomitant]
     Route: 042
     Dates: start: 20210402, end: 20210402
  19. THYROZOL [Concomitant]
     Active Substance: METHIMAZOLE
     Route: 048
     Dates: start: 201809
  20. LEVOXA [Concomitant]
     Active Substance: LEVOFLOXACIN
     Route: 048
     Dates: start: 20210402, end: 20210406
  21. ENCORTON [Concomitant]
     Active Substance: PREDNISONE
     Route: 048
     Dates: start: 20210325, end: 20210331
  22. CLEMASTIN [Concomitant]
     Active Substance: CLEMASTINE
     Route: 042
     Dates: start: 20210520, end: 20210520
  23. HEVIRAN [Concomitant]
     Active Substance: ACYCLOVIR
     Route: 048
     Dates: start: 20210409
  24. DOXORUBICIN [Suspect]
     Active Substance: DOXORUBICIN
     Indication: B-CELL LYMPHOMA
     Dosage: THE PATIENT RECEIVED THE MOST RECENT DOSE OF DOXORUBICIN (110 MG) ON 20/MAY/2021, 10/JUN/2021 PRIOR
     Route: 042
     Dates: start: 20210401
  25. METOCARD ZK [Concomitant]
     Active Substance: METOPROLOL TARTRATE
     Route: 048
     Dates: start: 202101
  26. IPP (POLAND) [Concomitant]
     Route: 048
     Dates: start: 20201215
  27. ZARZIO [Concomitant]
     Active Substance: FILGRASTIM
     Route: 058
     Dates: start: 20210402, end: 20210406
  28. AMERTIL [Concomitant]
     Active Substance: CETIRIZINE HYDROCHLORIDE
     Route: 048
     Dates: start: 20210520, end: 20210520
  29. ATORIS [Concomitant]
     Active Substance: ATORVASTATIN CALCIUM
     Route: 048
     Dates: start: 200101
  30. ZARZIO [Concomitant]
     Active Substance: FILGRASTIM
     Route: 058
     Dates: start: 20210521, end: 20210525
  31. ENCORTON [Concomitant]
     Active Substance: PREDNISONE
     Route: 048
     Dates: start: 20210521, end: 20210524
  32. PARACETAMOL [Concomitant]
     Active Substance: ACETAMINOPHEN
     Route: 048
     Dates: start: 20210520, end: 20210520
  33. DEXAMETHASONE. [Concomitant]
     Active Substance: DEXAMETHASONE
     Route: 042
     Dates: start: 20210408, end: 20210408
  34. DEXAMETHASONE. [Concomitant]
     Active Substance: DEXAMETHASONE
     Route: 042
     Dates: start: 20210415, end: 20210415
  35. CYCLOPHOSPHAMIDE. [Suspect]
     Active Substance: CYCLOPHOSPHAMIDE
     Indication: B-CELL LYMPHOMA
     Dosage: THE PATIENT RECEIVED THE MOST RECENT DOSE OF CYCLOPHOSPHAMIDE (1665 MG) ON 20/MAY/2021, 10/JUN/2021
     Route: 042
     Dates: start: 20210401
  36. PARACETAMOL [Concomitant]
     Active Substance: ACETAMINOPHEN
     Route: 048
     Dates: start: 20210610, end: 20210610
  37. AMERTIL [Concomitant]
     Active Substance: CETIRIZINE HYDROCHLORIDE
     Route: 048
     Dates: start: 20210610, end: 20210610
  38. ZAMUR [Concomitant]
     Active Substance: CEFUROXIME AXETIL
     Route: 048
     Dates: start: 20210412, end: 20210418
  39. DIUVER [Concomitant]
     Active Substance: TORSEMIDE
     Route: 048
     Dates: start: 20201218, end: 20210429
  40. ELIQUIS [Concomitant]
     Active Substance: APIXABAN
     Route: 048
     Dates: start: 20201116
  41. AMERTIL [Concomitant]
     Active Substance: CETIRIZINE HYDROCHLORIDE
     Route: 048
     Dates: start: 20210415, end: 20210415

REACTIONS (4)
  - Anaemia [Recovered/Resolved]
  - Fistula [Recovered/Resolved]
  - Anastomotic ulcer [Recovered/Resolved with Sequelae]
  - Ulcer [Recovered/Resolved with Sequelae]

NARRATIVE: CASE EVENT DATE: 20210422
